FAERS Safety Report 6728474-1 (Version None)
Quarter: 2010Q2

REPORT INFORMATION
  Report Type: 
  Country: None (occurrence: None)
  Receive Date: 20100517
  Receipt Date: 20100506
  Transmission Date: 20101027
  Serious: Yes (Hospitalization, Other)
  Sender: FDA-Public Use
  Company Number: US-AMGEN-KDL410964

PATIENT
  Sex: Female

DRUGS (2)
  1. ENBREL [Suspect]
     Indication: RHEUMATOID ARTHRITIS
     Route: 058
     Dates: start: 20070513
  2. METHOTREXATE [Concomitant]
     Route: 048

REACTIONS (8)
  - BLOOD CALCIUM INCREASED [None]
  - BONE PAIN [None]
  - CORONARY ARTERIAL STENT INSERTION [None]
  - DEPRESSION [None]
  - DYSPHAGIA [None]
  - HYPERTENSION [None]
  - PARATHYROID DISORDER [None]
  - PYREXIA [None]
